FAERS Safety Report 23956591 (Version 1)
Quarter: 2024Q2

REPORT INFORMATION
  Report Type: Report from Study
  Country: CO (occurrence: CO)
  Receive Date: 20240610
  Receipt Date: 20240610
  Transmission Date: 20240716
  Serious: Yes (Hospitalization, Other)
  Sender: FDA-Public Use
  Company Number: CO-AstraZeneca-2024-215013

PATIENT
  Age: 67 Day
  Sex: Male
  Weight: 2.5 kg

DRUGS (2)
  1. SYNAGIS [Suspect]
     Active Substance: PALIVIZUMAB
     Indication: Respiratory syncytial virus infection
     Dosage: 34 MG, MONTHLY
     Route: 030
     Dates: start: 20240524
  2. SYNAGIS [Suspect]
     Active Substance: PALIVIZUMAB
     Dosage: 39 MG
     Route: 030
     Dates: start: 20240530

REACTIONS (2)
  - Apnoea [Recovering/Resolving]
  - Inappropriate schedule of product administration [Recovering/Resolving]

NARRATIVE: CASE EVENT DATE: 20240530
